FAERS Safety Report 4944464-3 (Version None)
Quarter: 2006Q1

REPORT INFORMATION
  Report Type: 
  Country: None (occurrence: None)
  Receive Date: 20060315
  Receipt Date: 20060217
  Transmission Date: 20060701
  Serious: Yes (Congenital Anomaly, Other)
  Sender: FDA-Public Use
  Company Number: JP-BRISTOL-MYERS SQUIBB COMPANY-13296033

PATIENT
  Sex: Female

DRUGS (1)
  1. SINEMET [Suspect]
     Route: 065

REACTIONS (4)
  - ABORTION INDUCED [None]
  - DRUG EXPOSURE DURING PREGNANCY [None]
  - OSTEOMALACIA [None]
  - PREGNANCY [None]
